FAERS Safety Report 11236540 (Version 1)
Quarter: 2015Q3

REPORT INFORMATION
  Report Type: Report from Study
  Country: ZA (occurrence: ZA)
  Receive Date: 20150702
  Receipt Date: 20150702
  Transmission Date: 20151125
  Serious: Yes (Other)
  Sender: FDA-Public Use
  Company Number: PHHY2015ZA062996

PATIENT
  Sex: Male

DRUGS (1)
  1. TOBI [Suspect]
     Active Substance: TOBRAMYCIN
     Indication: PSEUDOMONAS INFECTION
     Dosage: 300 MG/5 ML
     Route: 055
     Dates: start: 20140412, end: 20150405

REACTIONS (3)
  - Behcet^s syndrome [Unknown]
  - Headache [Recovering/Resolving]
  - Malaise [Unknown]
